FAERS Safety Report 9494857 (Version 1)
Quarter: 2013Q3

REPORT INFORMATION
  Report Type: Spontaneous
  Country: US (occurrence: US)
  Receive Date: 20130903
  Receipt Date: 20130903
  Transmission Date: 20140515
  Serious: No
  Sender: FDA-Public Use
  Company Number: US-TEVA-426905USA

PATIENT
  Age: 12 Week
  Sex: Male

DRUGS (1)
  1. QVAR [Suspect]
     Indication: ASTHMA
     Route: 055
     Dates: start: 201305

REACTIONS (3)
  - Aggression [Not Recovered/Not Resolved]
  - Mood altered [Not Recovered/Not Resolved]
  - Abnormal behaviour [Not Recovered/Not Resolved]
